FAERS Safety Report 20179825 (Version 1)
Quarter: 2021Q4

REPORT INFORMATION
  Report Type: Spontaneous
  Country: GR (occurrence: GR)
  Receive Date: 20211214
  Receipt Date: 20211214
  Transmission Date: 20220303
  Serious: Yes (Other)
  Sender: FDA-Public Use
  Company Number: GR-CELLTRION INC.-2021GR016581

PATIENT

DRUGS (1)
  1. RITUXIMAB [Suspect]
     Active Substance: RITUXIMAB
     Indication: Ataxia telangiectasia
     Dosage: 375 MG/M2 (FOR FOUR DOSES)
     Route: 041

REACTIONS (3)
  - Aspergillus infection [Unknown]
  - Actinomycosis [Unknown]
  - Off label use [Unknown]
